FAERS Safety Report 23127659 (Version 1)
Quarter: 2023Q4

REPORT INFORMATION
  Report Type: Spontaneous
  Country: FR (occurrence: FR)
  Receive Date: 20231031
  Receipt Date: 20231031
  Transmission Date: 20240110
  Serious: Yes (Other)
  Sender: FDA-Public Use
  Company Number: FR-AFSSAPS-CF2023000449

PATIENT
  Age: 51 Year
  Sex: Male
  Weight: 89 kg

DRUGS (4)
  1. CLARITHROMYCIN [Suspect]
     Active Substance: CLARITHROMYCIN
     Indication: Legionella infection
     Dosage: 500 MILLIGRAM, TWO TIMES A DAY (2 TABS MORNING AND EVENING FROM 8 SEP EVENING TO SEP 12, 2023 MORMIM
     Route: 048
     Dates: start: 20230908, end: 20230912
  2. RIFAMPIN [Suspect]
     Active Substance: RIFAMPIN
     Indication: Legionella infection
     Dosage: 600 MILLIGRAM, TWO TIMES A DAY
     Route: 048
     Dates: start: 20230908, end: 20230912
  3. RIFAMPIN [Suspect]
     Active Substance: RIFAMPIN
     Indication: Legionella infection
     Dosage: 1200 MILLIGRAM, TWO TIMES A DAY 1200 MILLIGRAM, TWO TIMES A DAY (1200 MG IV INFUSION FROM SEPTERMBER
     Route: 042
     Dates: start: 20230906, end: 20230908
  4. CLARITHROMYCIN [Suspect]
     Active Substance: CLARITHROMYCIN
     Indication: Legionella infection
     Dosage: 500MG IV PERF 2 FOIS PAR JOUR DU 5 AU 8 SEPTEMBRE 2023 MATIN
     Route: 042
     Dates: start: 20230905, end: 20230908

REACTIONS (2)
  - Hepatic cytolysis [Recovering/Resolving]
  - Hepatic enzyme increased [Recovering/Resolving]

NARRATIVE: CASE EVENT DATE: 20230910
